FAERS Safety Report 6077306-6 (Version None)
Quarter: 2009Q1

REPORT INFORMATION
  Report Type: 
  Country: None (occurrence: None)
  Receive Date: 20090213
  Receipt Date: 20090206
  Transmission Date: 20090719
  Serious: Yes (Other)
  Sender: FDA-Public Use
  Company Number: B0519523A

PATIENT
  Age: 30 Year
  Sex: Female
  Weight: 50 kg

DRUGS (1)
  1. ZENTEL [Suspect]
     Indication: DRUG USE FOR UNKNOWN INDICATION
     Dosage: 2TAB PER DAY
     Route: 048
     Dates: start: 20080416, end: 20080416

REACTIONS (2)
  - ABORTION INDUCED [None]
  - DRUG EXPOSURE DURING PREGNANCY [None]
